FAERS Safety Report 24223846 (Version 1)
Quarter: 2024Q3

REPORT INFORMATION
  Report Type: Report from Study
  Country: BR (occurrence: BR)
  Receive Date: 20240819
  Receipt Date: 20240819
  Transmission Date: 20241016
  Serious: Yes (Other)
  Sender: BAYER
  Company Number: BR-BAYER-2023A166563

PATIENT
  Age: 68 Year
  Sex: Male

DRUGS (13)
  1. NEXAVAR [Suspect]
     Active Substance: SORAFENIB
     Indication: Hepatocellular carcinoma
     Dosage: 400 MG, BID
     Dates: start: 202302
  2. NEXAVAR [Suspect]
     Active Substance: SORAFENIB
     Indication: Hepatocellular carcinoma
     Dosage: 600 MG, QD 2 TABLETS IN THE MORNING AND 1 TABLET AT NIGHT.
     Dates: start: 202305
  3. NEXAVAR [Suspect]
     Active Substance: SORAFENIB
     Indication: Hepatocellular carcinoma
     Dosage: DOSE REDUCED
  4. WARFARIN [Concomitant]
     Active Substance: WARFARIN
     Indication: Coagulopathy
     Dosage: UNK
     Dates: start: 2020, end: 202310
  5. FUROSEMIDE [Concomitant]
     Active Substance: FUROSEMIDE
     Indication: Hypertension
     Dosage: 50 MG, QD
  6. AMIODARONE [Concomitant]
     Active Substance: AMIODARONE
     Indication: Hypertension
     Dosage: 100 MG, QD
     Dates: start: 2020
  7. AMIODARONE [Concomitant]
     Active Substance: AMIODARONE
     Indication: Cardiac disorder
  8. CARVEDILOL [Concomitant]
     Active Substance: CARVEDILOL
     Indication: Arrhythmia
     Dosage: 1 TABLET EVERY 12 HOURS
     Dates: start: 2020
  9. VITAMIN D NOS [Concomitant]
     Active Substance: CHOLECALCIFEROL\ERGOCALCIFEROL
     Dosage: 1 TABLET 50000 IU PER WEEK
     Dates: start: 202305
  10. NIFEDIPINE [Concomitant]
     Active Substance: NIFEDIPINE
     Indication: Hypertension
     Dosage: 1 TABLET A DAY
     Dates: start: 202305
  11. FOLIC ACID [Concomitant]
     Active Substance: FOLIC ACID
     Indication: Vitamin supplementation
     Dosage: 1 TABLET A DAY
     Dates: start: 2022
  12. SUSTAGEN [Concomitant]
     Dosage: UNK
  13. ENSURE [CARBOHYDRATES NOS;FATS NOS;MINERALS NOS;PROTEINS NOS;VITAM [Concomitant]
     Dosage: UNK

REACTIONS (19)
  - Hepatic necrosis [Unknown]
  - Fall [Not Recovered/Not Resolved]
  - Skin discolouration [Not Recovered/Not Resolved]
  - Skin abrasion [Not Recovered/Not Resolved]
  - Burning sensation [Not Recovered/Not Resolved]
  - Ageusia [Recovering/Resolving]
  - Blood creatinine abnormal [Not Recovered/Not Resolved]
  - Blood urea abnormal [Not Recovered/Not Resolved]
  - Skin exfoliation [Recovered/Resolved]
  - Weight decreased [Recovering/Resolving]
  - Vomiting [Recovered/Resolved]
  - Hyperkeratosis [Not Recovered/Not Resolved]
  - Diarrhoea [Recovering/Resolving]
  - Alopecia [Recovering/Resolving]
  - Decreased appetite [Recovering/Resolving]
  - Nausea [Recovered/Resolved]
  - Malaise [Recovering/Resolving]
  - Dysgeusia [Recovering/Resolving]
  - Therapeutic product effect increased [Unknown]

NARRATIVE: CASE EVENT DATE: 20230501
